FAERS Safety Report 19211663 (Version 3)
Quarter: 2023Q2

REPORT INFORMATION
  Report Type: Spontaneous
  Country: CA (occurrence: CA)
  Receive Date: 20210504
  Receipt Date: 20230401
  Transmission Date: 20230721
  Serious: Yes (Other)
  Sender: FDA-Public Use
  Company Number: CA-TEVA-2021-CA-1906890

PATIENT
  Age: 78 Year
  Sex: Male
  Weight: 87 kg

DRUGS (14)
  1. BISOPROLOL [Suspect]
     Active Substance: BISOPROLOL
     Indication: Product used for unknown indication
     Route: 065
  2. PANTOPRAZOLE SODIUM [Suspect]
     Active Substance: PANTOPRAZOLE SODIUM
     Indication: Product used for unknown indication
     Route: 065
  3. PERINDOPRIL [Suspect]
     Active Substance: PERINDOPRIL
     Indication: Product used for unknown indication
     Route: 065
  4. ROSUVASTATIN CALCIUM [Suspect]
     Active Substance: ROSUVASTATIN CALCIUM
     Indication: Product used for unknown indication
     Route: 065
  5. ROSUVASTATIN CALCIUM [Suspect]
     Active Substance: ROSUVASTATIN CALCIUM
     Route: 048
  6. ALBUTEROL\IPRATROPIUM BROMIDE [Suspect]
     Active Substance: ALBUTEROL\IPRATROPIUM BROMIDE
     Indication: Product used for unknown indication
     Route: 065
  7. ACLIDINIUM BROMIDE [Suspect]
     Active Substance: ACLIDINIUM BROMIDE
     Indication: Product used for unknown indication
     Route: 055
  8. ASPIRIN [Suspect]
     Active Substance: ASPIRIN
     Indication: Product used for unknown indication
     Route: 065
  9. FLUTICASONE FUROATE\VILANTEROL TRIFENATATE [Suspect]
     Active Substance: FLUTICASONE FUROATE\VILANTEROL TRIFENATATE
     Indication: Chronic obstructive pulmonary disease
     Route: 065
  10. FLUTICASONE PROPIONATE\SALMETEROL XINAFOATE [Suspect]
     Active Substance: FLUTICASONE PROPIONATE\SALMETEROL XINAFOATE
     Indication: Product used for unknown indication
     Route: 065
  11. THEOPHYLLINE [Suspect]
     Active Substance: THEOPHYLLINE
     Indication: Product used for unknown indication
     Dosage: 200 MILLIGRAM DAILY;
     Route: 048
  12. TIOTROPIUM BROMIDE [Suspect]
     Active Substance: TIOTROPIUM BROMIDE
     Indication: Product used for unknown indication
     Route: 065
  13. ADVAIR HFA [Suspect]
     Active Substance: FLUTICASONE PROPIONATE\SALMETEROL XINAFOATE
     Indication: Product used for unknown indication
     Route: 065
  14. ASPIRIN [Suspect]
     Active Substance: ASPIRIN
     Indication: Product used for unknown indication
     Route: 065

REACTIONS (12)
  - Ataxia [Recovered/Resolved]
  - Atrial fibrillation [Recovered/Resolved]
  - Breath sounds abnormal [Recovered/Resolved]
  - Bronchial obstruction [Recovered/Resolved]
  - Coronary artery bypass [Recovered/Resolved]
  - Dizziness [Recovered/Resolved]
  - Dyspnoea exertional [Recovered/Resolved]
  - Oropharyngeal discomfort [Recovered/Resolved]
  - Tachycardia [Recovered/Resolved]
  - Ventricular hypokinesia [Recovered/Resolved]
  - Therapy interrupted [Recovered/Resolved]
  - Therapy cessation [Recovered/Resolved]
